FAERS Safety Report 6579155-9 (Version None)
Quarter: 2010Q1

REPORT INFORMATION
  Report Type: 
  Country: None (occurrence: None)
  Receive Date: 20100212
  Receipt Date: 20100201
  Transmission Date: 20100710
  Serious: Yes (Other)
  Sender: FDA-Public Use
  Company Number: US-JNJFOC-20100201985

PATIENT
  Sex: Female
  Weight: 59 kg

DRUGS (4)
  1. TYLENOL-500 [Suspect]
     Route: 048
  2. TYLENOL-500 [Suspect]
     Indication: PAIN
     Route: 048
  3. HUMIRA [Suspect]
     Indication: PSORIATIC ARTHROPATHY
  4. THYROID PREPARATIONS [Concomitant]

REACTIONS (2)
  - FATIGUE [None]
  - HAEMATOCHEZIA [None]
